FAERS Safety Report 17538278 (Version 1)
Quarter: 2020Q1

REPORT INFORMATION
  Report Type: Spontaneous
  Country: US (occurrence: US)
  Receive Date: 20200313
  Receipt Date: 20200313
  Transmission Date: 20200409
  Serious: Yes (Other)
  Sender: FDA-Public Use
  Company Number: None

PATIENT
  Age: 70 Year
  Sex: Male
  Weight: 112.5 kg

DRUGS (6)
  1. PREGABALIN. [Suspect]
     Active Substance: PREGABALIN
     Indication: NEUROPATHY PERIPHERAL
     Dosage: ?          QUANTITY:1 TABLET(S);?
     Route: 048
  2. CYMBALTA [Concomitant]
     Active Substance: DULOXETINE HYDROCHLORIDE
  3. BRIO 100 MG [Concomitant]
  4. PREGABLIN [Concomitant]
     Active Substance: PREGABALIN
  5. BUSPIRONE [Concomitant]
     Active Substance: BUSPIRONE HYDROCHLORIDE
  6. GEMFIBROZIL. [Concomitant]
     Active Substance: GEMFIBROZIL

REACTIONS (9)
  - Middle insomnia [None]
  - Sleep disorder [None]
  - Panic attack [None]
  - Muscle disorder [None]
  - Fatigue [None]
  - Balance disorder [None]
  - Ventricular extrasystoles [None]
  - Depression [None]
  - Vertigo [None]

NARRATIVE: CASE EVENT DATE: 20181101
